FAERS Safety Report 6603641-6 (Version None)
Quarter: 2010Q1

REPORT INFORMATION
  Report Type: 
  Country: None (occurrence: None)
  Receive Date: 20100226
  Receipt Date: 20091221
  Transmission Date: 20100710
  Serious: No
  Sender: FDA-Public Use
  Company Number: A0836202A

PATIENT
  Age: 60 Year
  Sex: Female

DRUGS (7)
  1. VALTREX [Suspect]
     Dosage: 1G PER DAY
     Route: 048
     Dates: start: 20091001
  2. NAPROXEN [Concomitant]
  3. SKELAXIN [Concomitant]
  4. NEURONTIN [Concomitant]
  5. ZOCOR [Concomitant]
  6. BENTYL [Concomitant]
  7. DIOVAN HCT [Concomitant]

REACTIONS (2)
  - DRUG INEFFECTIVE [None]
  - ORAL HERPES [None]
